FAERS Safety Report 6426453-5 (Version None)
Quarter: 2009Q4

REPORT INFORMATION
  Report Type: 
  Country: None (occurrence: None)
  Receive Date: 20091104
  Receipt Date: 20091023
  Transmission Date: 20100525
  Serious: Yes (Other)
  Sender: FDA-Public Use
  Company Number: PHHY2009GB46899

PATIENT
  Age: 61 Year
  Sex: Female
  Weight: 73 kg

DRUGS (9)
  1. DEFERASIROX [Suspect]
     Dosage: 1500 MG, QD
     Route: 048
     Dates: start: 20071023, end: 20071101
  2. ASPIRIN [Concomitant]
     Dosage: 75 MG, QD
     Route: 048
  3. ATORVASTATIN [Concomitant]
     Dosage: 10 MG, QD
     Route: 048
  4. BISOPROLOL [Concomitant]
     Dosage: 5 MG, QD
     Route: 048
  5. CANDESARTAN CILEXETIL [Concomitant]
     Dosage: 45 MG, QD
     Route: 048
  6. COD-LIVER OIL [Concomitant]
     Dosage: 1 DF, QD
     Route: 048
  7. FYBOGEL [Concomitant]
     Dosage: 1 DF, BID
     Route: 048
  8. GLYCERYL TRINITRATE [Concomitant]
     Dosage: UNK
     Route: 060
  9. OMEPRAZOLE [Concomitant]
     Dosage: 20 MG, QD
     Route: 048

REACTIONS (9)
  - ANXIETY [None]
  - CRYING [None]
  - ERYTHEMA MULTIFORME [None]
  - GLOSSODYNIA [None]
  - OROPHARYNGEAL PAIN [None]
  - PHARYNGEAL OEDEMA [None]
  - RASH PAPULAR [None]
  - STEVENS-JOHNSON SYNDROME [None]
  - SWOLLEN TONGUE [None]
